FAERS Safety Report 4398949-1 (Version None)
Quarter: 2004Q3

REPORT INFORMATION
  Report Type: 
  Country: None (occurrence: None)
  Receive Date: 20040712
  Receipt Date: 20040630
  Transmission Date: 20050211
  Serious: No
  Sender: FDA-Public Use
  Company Number: 04H-163-0265538-00

PATIENT
  Sex: Female

DRUGS (1)
  1. MAGNESIUM SULFATE [Suspect]
     Indication: PRE-ECLAMPSIA
     Dosage: 2 GM, PER HOUR, INTRAVENOUS
     Route: 042

REACTIONS (4)
  - FALL [None]
  - SKULL FRACTURE [None]
  - SYNCOPE [None]
  - WRIST FRACTURE [None]
